FAERS Safety Report 9629197 (Version 1)
Quarter: 2013Q4

REPORT INFORMATION
  Report Type: Spontaneous
  Country: US (occurrence: US)
  Receive Date: 20131017
  Receipt Date: 20131017
  Transmission Date: 20140711
  Serious: Yes (Death)
  Sender: FDA-Public Use
  Company Number: US-MPIJNJ-2013MPI000588

PATIENT
  Age: 77 Year
  Sex: Female

DRUGS (3)
  1. VELCADE [Suspect]
     Indication: PLASMA CELL MYELOMA
     Dosage: 1 MG, ON DAYS 1,4,8 AND 11
     Route: 058
  2. DECADRON                           /00016001/ [Concomitant]
     Dosage: 12 MG, UNK
  3. ZOFRAN                             /00955302/ [Concomitant]
     Dosage: 8 MG, UNK
     Route: 048

REACTIONS (1)
  - Death [Fatal]
